FAERS Safety Report 9890402 (Version 1)
Quarter: 2014Q1

REPORT INFORMATION
  Report Type: Spontaneous
  Country: US (occurrence: None)
  Receive Date: 20140207
  Receipt Date: 20140207
  Transmission Date: 20141002
  Serious: Yes (Death)
  Sender: FDA-Public Use
  Company Number: SYM-2014-15366

PATIENT
  Age: 63 Year
  Sex: Female

DRUGS (4)
  1. DIAZEPAM [Suspect]
     Indication: PRODUCT USED FOR UNKNOWN INDICATION
  2. FENTANYL [Suspect]
  3. OXYCODONE (OXYCODONE) (OXYCODONE) [Suspect]
  4. DOXYLAMINE [Suspect]

REACTIONS (1)
  - Poisoning [None]
